FAERS Safety Report 8037447-0 (Version None)
Quarter: 2012Q1

REPORT INFORMATION
  Report Type: 
  Country: None (occurrence: None)
  Receive Date: 20120111
  Receipt Date: 20120106
  Transmission Date: 20120608
  Serious: Yes (Death, Hospitalization, Other)
  Sender: FDA-Public Use
  Company Number: AU-PFIZER INC-2011261718

PATIENT
  Age: 79 Year
  Sex: Male
  Weight: 92.8 kg

DRUGS (10)
  1. BOSENTAN [Concomitant]
     Dosage: 125 MG, 2X/DAY
     Route: 048
  2. FUROSEMIDE [Concomitant]
     Dosage: 40 MG, 2X/DAY
     Route: 048
  3. NEXIUM [Concomitant]
     Dosage: 20 MG AT MIDDAY
     Route: 048
  4. SPIRONOLACTONE [Concomitant]
     Dosage: 25 MG, 2X/DAY
     Route: 048
  5. MOVIPREP [Concomitant]
     Dosage: 1 DF, IN THE MORNING
     Route: 048
  6. REVATIO [Suspect]
     Indication: PULMONARY HYPERTENSION
     Dosage: 20 MG, 3X/DAY
     Route: 048
     Dates: start: 20110324, end: 20111021
  7. ASPIRIN [Concomitant]
     Dosage: 100 MG, 1X/DAY
     Route: 048
  8. AMIODARONE [Concomitant]
     Dosage: 100 MG, 1X/DAY
     Route: 048
  9. COLOXYL WITH SENNA [Concomitant]
     Dosage: 2 DF, 2X/DAY
     Route: 048
  10. PEXSIG [Concomitant]
     Dosage: 100 MG IN THE MORNING
     Route: 048

REACTIONS (6)
  - HYPOVOLAEMIA [None]
  - RENAL FAILURE ACUTE [None]
  - RESPIRATORY ARREST [None]
  - FLUID OVERLOAD [None]
  - HYPERCAPNIA [None]
  - PNEUMONIA [None]
